FAERS Safety Report 6870678-1 (Version None)
Quarter: 2010Q3

REPORT INFORMATION
  Report Type: 
  Country: None (occurrence: None)
  Receive Date: 20100723
  Receipt Date: 20100720
  Transmission Date: 20110219
  Serious: Yes (Other)
  Sender: FDA-Public Use
  Company Number: US-CEPHALON-2010003834

PATIENT
  Sex: Male

DRUGS (7)
  1. NUVIGIL [Suspect]
     Indication: SLEEP APNOEA SYNDROME
     Route: 048
     Dates: start: 20100630, end: 20100713
  2. NEXIUM [Concomitant]
  3. SINGULAIR [Concomitant]
  4. ALBUTEROL [Concomitant]
  5. ADVAIR DISKUS 100/50 [Concomitant]
  6. CELEBREX [Concomitant]
  7. FLEXERIL [Concomitant]

REACTIONS (1)
  - PHARYNGEAL OEDEMA [None]
